FAERS Safety Report 22680405 (Version 2)
Quarter: 2025Q2

REPORT INFORMATION
  Report Type: Report from Study
  Country: US (occurrence: US)
  Receive Date: 20230707
  Receipt Date: 20250514
  Transmission Date: 20250717
  Serious: No
  Sender: TAKEDA
  Company Number: US-TAKEDA-2021TUS057847

PATIENT
  Sex: Male
  Weight: 70 kg

DRUGS (21)
  1. HUMAN IMMUNOGLOBULIN G [Suspect]
     Active Substance: HUMAN IMMUNOGLOBULIN G
     Indication: Combined immunodeficiency
     Dosage: 20 GRAM, Q2WEEKS
     Dates: start: 20210426
  2. HUMAN IMMUNOGLOBULIN G [Suspect]
     Active Substance: HUMAN IMMUNOGLOBULIN G
     Dosage: 20 GRAM, Q2WEEKS
     Dates: start: 20220323
  3. HUMAN IMMUNOGLOBULIN G [Suspect]
     Active Substance: HUMAN IMMUNOGLOBULIN G
     Dosage: 20 GRAM, Q2WEEKS
  4. DIPHENHYDRAMINE [Concomitant]
     Active Substance: DIPHENHYDRAMINE
  5. DULERA [Concomitant]
     Active Substance: FORMOTEROL FUMARATE DIHYDRATE\MOMETASONE FUROATE
  6. ZINC [Concomitant]
     Active Substance: ZINC
  7. EPINEPHRINE [Concomitant]
     Active Substance: EPINEPHRINE
  8. HERBALS [Concomitant]
     Active Substance: HERBALS
  9. BABY [Concomitant]
     Active Substance: TALC
  10. Ayr [Concomitant]
  11. SALINE [Concomitant]
     Active Substance: SODIUM CHLORIDE
  12. ACETAMINOPHEN [Concomitant]
     Active Substance: ACETAMINOPHEN
  13. ECHINACEA [Concomitant]
     Active Substance: ECHINACEA, UNSPECIFIED
  14. PROAIR HFA [Concomitant]
     Active Substance: ALBUTEROL SULFATE
  15. VITAMIN C [Concomitant]
     Active Substance: ASCORBIC ACID
  16. LIDOCAINE [Concomitant]
     Active Substance: LIDOCAINE
  17. Olbas [Concomitant]
  18. Ivy [Concomitant]
  19. IBUPROFEN [Concomitant]
     Active Substance: IBUPROFEN
  20. AZITHROMYCIN [Concomitant]
     Active Substance: AZITHROMYCIN
  21. DIPHENHYDRAMINE HYDROCHLORIDE [Concomitant]
     Active Substance: DIPHENHYDRAMINE HYDROCHLORIDE

REACTIONS (6)
  - Paranasal sinus discomfort [Unknown]
  - Nasal valve collapse [Unknown]
  - Insurance issue [Unknown]
  - Product use issue [Unknown]
  - Extra dose administered [Unknown]
  - Sinusitis [Not Recovered/Not Resolved]
